FAERS Safety Report 10947479 (Version 4)
Quarter: 2017Q1

REPORT INFORMATION
  Report Type: Spontaneous
  Country: US (occurrence: US)
  Receive Date: 20150323
  Receipt Date: 20170210
  Transmission Date: 20170428
  Serious: Yes (Other)
  Sender: FDA-Public Use
  Company Number: US-BAYER-2015-038994

PATIENT
  Age: 67 Year
  Sex: Male
  Weight: 99.77 kg

DRUGS (17)
  1. PREDNISONE. [Concomitant]
     Active Substance: PREDNISONE
     Indication: BRONCHITIS
     Dosage: 2.5 DF, UNK
     Dates: start: 20130311
  2. OXYCODONE [Concomitant]
     Active Substance: OXYCODONE
     Indication: PAIN IN EXTREMITY
  3. VITAMIN D [Concomitant]
     Active Substance: CHOLECALCIFEROL
  4. AVONEX [Concomitant]
     Active Substance: INTERFERON BETA-1A
  5. GABAPENTIN. [Concomitant]
     Active Substance: GABAPENTIN
     Indication: NEURALGIA
     Dosage: 300 MG, Q8HR
  6. COLCHICINE. [Concomitant]
     Active Substance: COLCHICINE
  7. ALLOPURINOL. [Concomitant]
     Active Substance: ALLOPURINOL
     Dosage: 200 UNK, UNK
  8. GABAPENTIN. [Concomitant]
     Active Substance: GABAPENTIN
     Indication: NEURALGIA
     Dosage: 600 MG, TID
  9. AMLODIPINE [Concomitant]
     Active Substance: AMLODIPINE BESYLATE
  10. FINASTERIDE. [Concomitant]
     Active Substance: FINASTERIDE
  11. MINOCYCLINE [Concomitant]
     Active Substance: MINOCYCLINE\MINOCYCLINE HYDROCHLORIDE
  12. ALEVE [Concomitant]
     Active Substance: NAPROXEN SODIUM
  13. AMITRIPTYLINE [Concomitant]
     Active Substance: AMITRIPTYLINE
  14. SIMVASTATIN. [Concomitant]
     Active Substance: SIMVASTATIN
  15. AVELOX [Suspect]
     Active Substance: MOXIFLOXACIN HYDROCHLORIDE
     Indication: BRONCHITIS
     Dosage: 400 MG, UNK
     Dates: start: 20130315, end: 20130319
  16. INDOCIN [Concomitant]
     Active Substance: INDOMETHACIN
  17. VICODIN [Concomitant]
     Active Substance: ACETAMINOPHEN\HYDROCODONE BITARTRATE

REACTIONS (19)
  - Paraesthesia [Not Recovered/Not Resolved]
  - Gait disturbance [Not Recovered/Not Resolved]
  - Dysstasia [Not Recovered/Not Resolved]
  - Discomfort [None]
  - Injury [None]
  - Neuropathy peripheral [Not Recovered/Not Resolved]
  - Pain in extremity [Not Recovered/Not Resolved]
  - Arthralgia [None]
  - Drug hypersensitivity [None]
  - Hypoaesthesia [Not Recovered/Not Resolved]
  - Emotional distress [None]
  - Burning sensation [Not Recovered/Not Resolved]
  - Neuropathy peripheral [None]
  - Pain [Recovering/Resolving]
  - Activities of daily living impaired [Not Recovered/Not Resolved]
  - Anxiety [None]
  - Anhedonia [None]
  - Peripheral sensorimotor neuropathy [Not Recovered/Not Resolved]
  - Axonal neuropathy [Not Recovered/Not Resolved]

NARRATIVE: CASE EVENT DATE: 2013
